FAERS Safety Report 16268203 (Version 1)
Quarter: 2019Q2

REPORT INFORMATION
  Report Type: Spontaneous
  Country: US (occurrence: US)
  Receive Date: 20190503
  Receipt Date: 20190503
  Transmission Date: 20190711
  Serious: No
  Sender: FDA-Public Use
  Company Number: US-BEH-2019101843

PATIENT
  Sex: Male

DRUGS (4)
  1. HAEGARDA [Suspect]
     Active Substance: HUMAN C1-ESTERASE INHIBITOR
     Indication: HEREDITARY ANGIOEDEMA
     Dosage: 5000 IU (3000 + 2000 UNIT VIALS), BIW (EVERY 3 OR 4 DAYS)
     Route: 058
     Dates: start: 201901
  2. PANTOPRAZOLE [Concomitant]
     Active Substance: PANTOPRAZOLE
     Dosage: 40 MG, UNK
     Route: 065
  3. HAEGARDA [Suspect]
     Active Substance: HUMAN C1-ESTERASE INHIBITOR
     Indication: PROPHYLAXIS
  4. DANAZOL. [Concomitant]
     Active Substance: DANAZOL
     Dosage: 200 MG, UNK
     Route: 065

REACTIONS (1)
  - Rhinorrhoea [Unknown]
